FAERS Safety Report 5097732-1 (Version None)
Quarter: 2006Q3

REPORT INFORMATION
  Report Type: 
  Country: None (occurrence: None)
  Receive Date: 20060901
  Receipt Date: 20060814
  Transmission Date: 20061208
  Serious: Yes (Other)
  Sender: FDA-Public Use
  Company Number: US200608004506

PATIENT
  Age: 55 Year
  Sex: Male

DRUGS (2)
  1. FLUOXETINE HYDROCHLORIDE [Suspect]
     Indication: DEPRESSION
     Dosage: 40 MG, DAILY (1/D)
  2. CYCLOBENZAPRINE HCL [Concomitant]

REACTIONS (2)
  - B-CELL LYMPHOMA [None]
  - SKIN LESION [None]
